FAERS Safety Report 14563536 (Version 1)
Quarter: 2018Q1

REPORT INFORMATION
  Report Type: Spontaneous
  Country: US (occurrence: US)
  Receive Date: 20180222
  Receipt Date: 20180222
  Transmission Date: 20180509
  Serious: No
  Sender: FDA-Public Use
  Company Number: US-SHIRE-US201733540

PATIENT
  Sex: Female

DRUGS (1)
  1. VYVANSE [Suspect]
     Active Substance: LISDEXAMFETAMINE DIMESYLATE
     Indication: PRODUCT USED FOR UNKNOWN INDICATION
     Dosage: UNK MG, UNK
     Route: 065

REACTIONS (13)
  - Osteoarthritis [Unknown]
  - Fatigue [Unknown]
  - Feeling abnormal [Unknown]
  - Product storage error [Unknown]
  - Fibromyalgia [Unknown]
  - Scoliosis [Unknown]
  - Product quality issue [Unknown]
  - Anxiety [Unknown]
  - Muscle spasms [Unknown]
  - Product physical issue [Unknown]
  - Weight increased [Unknown]
  - Pain [Unknown]
  - Sinusitis [Unknown]
